FAERS Safety Report 7716914-0 (Version None)
Quarter: 2011Q3

REPORT INFORMATION
  Report Type: 
  Country: None (occurrence: None)
  Receive Date: 20110829
  Receipt Date: 20110819
  Transmission Date: 20111222
  Serious: Yes (Hospitalization, Disabling, Other)
  Sender: FDA-Public Use
  Company Number: US-ASTRAZENECA-2011SE24659

PATIENT
  Age: 61 Year
  Sex: Female

DRUGS (25)
  1. OSTEO BI-FLEX [Concomitant]
     Indication: ARTHRALGIA
     Dosage: 2/DAY
  2. RESVERATROL [Concomitant]
  3. FIORICET [Concomitant]
     Indication: SINUS DISORDER
  4. PERCOCET [Concomitant]
     Indication: BACK PAIN
     Dosage: 10 MG/325 MG
  5. NEXIUM [Suspect]
     Indication: GASTRIC ULCER
     Route: 048
  6. NEXIUM [Suspect]
     Indication: GASTRITIS
     Route: 048
  7. FIORICET [Concomitant]
     Indication: TENSION HEADACHE
  8. CORAL CALCIUM [Concomitant]
     Dosage: 3/DAY
  9. SIMAVASTATIN [Concomitant]
     Indication: BLOOD CHOLESTEROL
  10. LORATADINE [Concomitant]
  11. COLON CLEAR FORMULA [Concomitant]
     Indication: MEDICAL DIET
  12. TRIAMCINOLONE [Concomitant]
     Indication: HERPES ZOSTER
  13. FISH OIL [Concomitant]
     Indication: MEDICAL DIET
  14. NEILMED SINUS RINSE [Concomitant]
     Indication: CHRONIC SINUSITIS
  15. NAPROXEN (ALEVE) [Concomitant]
     Dosage: 220MG 2-4/DAY
  16. EFFEXOR XR [Concomitant]
     Indication: DEPRESSION
  17. ALENDRONATE SODIUM [Concomitant]
     Indication: BONE DISORDER
     Dosage: 35 MG, FOR 1 WEEK
  18. ZOLPIDEM [Concomitant]
     Indication: SLEEP DISORDER
  19. DIAZEPAM [Concomitant]
     Indication: STRESS
  20. AMLODIPINE [Concomitant]
     Indication: HYPERTENSION
     Dosage: 10-40MG/DAY
  21. CO Q-10 [Concomitant]
     Indication: CARDIAC DISORDER
  22. ASPIRIN [Concomitant]
     Indication: CARDIAC DISORDER
  23. MUCINEX [Concomitant]
  24. PERCOCET [Concomitant]
     Indication: NECK PAIN
     Dosage: 10 MG/325 MG
  25. ZICAM [Concomitant]
     Indication: SEASONAL ALLERGY

REACTIONS (28)
  - HAND FRACTURE [None]
  - DISABILITY [None]
  - BACK INJURY [None]
  - MALAISE [None]
  - OESOPHAGEAL ULCER [None]
  - JOINT DISLOCATION [None]
  - PERIARTHRITIS [None]
  - IMPAIRED DRIVING ABILITY [None]
  - ACCIDENT [None]
  - SCOLIOSIS [None]
  - HERPES ZOSTER [None]
  - GAIT DISTURBANCE [None]
  - OSTEOPENIA [None]
  - JOINT RANGE OF MOTION DECREASED [None]
  - ARTHROPATHY [None]
  - ROTATOR CUFF SYNDROME [None]
  - HYPERTENSION [None]
  - ANKLE FRACTURE [None]
  - ASTHENIA [None]
  - SPEECH DISORDER [None]
  - SHOULDER OPERATION [None]
  - SINUSITIS [None]
  - PAIN IN EXTREMITY [None]
  - VASCULAR STENOSIS [None]
  - FALL [None]
  - MULTIPLE ALLERGIES [None]
  - ARTHRITIS [None]
  - BLOOD CHOLESTEROL INCREASED [None]
